FAERS Safety Report 6749514-X (Version None)
Quarter: 2010Q2

REPORT INFORMATION
  Report Type: 
  Country: None (occurrence: None)
  Receive Date: 20100527
  Receipt Date: 20100517
  Transmission Date: 20101027
  Serious: Yes (Other)
  Sender: FDA-Public Use
  Company Number: 8050277

PATIENT
  Sex: Female
  Weight: 87 kg

DRUGS (9)
  1. CERTOLIZUMAB PEGOL      (CERTOLIZUMAB PEGOL) [Suspect]
     Indication: RHEUMATOID ARTHRITIS
     Dosage: (2000 MG  1X/2 WEEKS SUBCUTANEOUS), (400 MG 1X/2 WEEKS SUBCUTANEOUS), (200 MG 1X/2 WEEKS SUBCUTANEOU
     Route: 058
     Dates: start: 20060111, end: 20060628
  2. CERTOLIZUMAB PEGOL      (CERTOLIZUMAB PEGOL) [Suspect]
     Indication: RHEUMATOID ARTHRITIS
     Dosage: (2000 MG  1X/2 WEEKS SUBCUTANEOUS), (400 MG 1X/2 WEEKS SUBCUTANEOUS), (200 MG 1X/2 WEEKS SUBCUTANEOU
     Route: 058
     Dates: start: 20060713, end: 20071112
  3. CERTOLIZUMAB PEGOL      (CERTOLIZUMAB PEGOL) [Suspect]
     Indication: RHEUMATOID ARTHRITIS
     Dosage: (2000 MG  1X/2 WEEKS SUBCUTANEOUS), (400 MG 1X/2 WEEKS SUBCUTANEOUS), (200 MG 1X/2 WEEKS SUBCUTANEOU
     Route: 058
     Dates: start: 20071212, end: 20090805
  4. CERTOLIZUMAB PEGOL      (CERTOLIZUMAB PEGOL) [Suspect]
     Indication: RHEUMATOID ARTHRITIS
     Dosage: (2000 MG  1X/2 WEEKS SUBCUTANEOUS), (400 MG 1X/2 WEEKS SUBCUTANEOUS), (200 MG 1X/2 WEEKS SUBCUTANEOU
     Route: 058
     Dates: start: 20090902, end: 20090916
  5. METHOTREXATE [Concomitant]
  6. MELOXICAM [Concomitant]
  7. FOLIC ACID [Concomitant]
  8. MOMETASONE FUROATE [Concomitant]
  9. CLOBETASOL PROPIONATE [Concomitant]

REACTIONS (5)
  - ATROPHIC VULVOVAGINITIS [None]
  - DRUG INEFFECTIVE [None]
  - DUODENITIS [None]
  - LEUKOCYTOCLASTIC VASCULITIS [None]
  - RADICULOPATHY [None]
